FAERS Safety Report 7678562-0 (Version None)
Quarter: 2011Q3

REPORT INFORMATION
  Report Type: 
  Country: None (occurrence: None)
  Receive Date: 20110811
  Receipt Date: 20110808
  Transmission Date: 20111222
  Serious: Yes (Hospitalization, Other)
  Sender: FDA-Public Use
  Company Number: US-ABBOTT-11P-163-0844994-00

PATIENT
  Age: 74 Year
  Sex: Male
  Weight: 84.444 kg

DRUGS (13)
  1. PRILOSEC [Concomitant]
     Indication: GASTROOESOPHAGEAL REFLUX DISEASE
  2. OXYGEN [Concomitant]
     Indication: CHRONIC OBSTRUCTIVE PULMONARY DISEASE
     Dosage: AT NIGHT DURING SLEEP
  3. COREG [Concomitant]
     Indication: PRODUCT USED FOR UNKNOWN INDICATION
     Dosage: 3.125MG TWICE DAILY
     Dates: start: 20110601
  4. COPIUM BROMIDE [Concomitant]
     Indication: RESPIRATORY TRACT CONGESTION
  5. PENTASA [Concomitant]
     Indication: COLITIS ULCERATIVE
  6. METOPROLOL TARTRATE [Concomitant]
     Indication: PRODUCT USED FOR UNKNOWN INDICATION
  7. HUMIRA [Suspect]
     Indication: PSORIATIC ARTHROPATHY
     Route: 058
     Dates: start: 20100601, end: 20110206
  8. LISINOPRIL [Concomitant]
     Indication: PRODUCT USED FOR UNKNOWN INDICATION
     Dates: start: 20110201
  9. BACTRIM DS [Suspect]
     Indication: DIARRHOEA
     Dates: start: 20110801, end: 20110801
  10. KEPPRA [Concomitant]
     Indication: COMPLEX PARTIAL SEIZURES
     Dates: start: 20070101
  11. PRILOSEC [Concomitant]
     Indication: DYSPEPSIA
  12. ALBUTEROL SULFATE AUTOHALER [Concomitant]
     Indication: ASTHMA
     Dosage: INHALER PUFF IN MORNING AND PUFF AT NIGHT AS NEEDED
     Route: 055
     Dates: start: 19720101
  13. COPIUM BROMIDE [Concomitant]
     Indication: CHRONIC OBSTRUCTIVE PULMONARY DISEASE
     Dosage: WITH BREATHING MACHINE 2-3 TIMES A DAY
     Route: 055

REACTIONS (10)
  - CARDIAC OUTPUT DECREASED [None]
  - DYSPEPSIA [None]
  - DIARRHOEA [None]
  - ABASIA [None]
  - DYSPNOEA [None]
  - ARTHRALGIA [None]
  - GENERAL PHYSICAL HEALTH DETERIORATION [None]
  - CHEST PAIN [None]
  - MYOCARDIAL INFARCTION [None]
  - ASTHENIA [None]
